FAERS Safety Report 6470177-5 (Version None)
Quarter: 2009Q4

REPORT INFORMATION
  Report Type: 
  Country: None (occurrence: None)
  Receive Date: 20091203
  Receipt Date: 20080225
  Transmission Date: 20100525
  Serious: Yes (Death, Hospitalization)
  Sender: FDA-Public Use
  Company Number: CZ-ELI_LILLY_AND_COMPANY-CZ200712004164

PATIENT
  Age: 28 Year
  Sex: Male

DRUGS (6)
  1. OLANZAPINE [Suspect]
     Indication: SCHIZOPHRENIA
     Dosage: 30 MG, DAILY (1/D)
     Route: 048
     Dates: end: 20070626
  2. OLANZAPINE [Suspect]
     Dosage: 20 MG, UNK
     Dates: start: 20070627, end: 20070704
  3. SEROQUEL [Concomitant]
     Indication: SCHIZOPHRENIA
     Dosage: 300 MG, DAILY (1/D)
     Route: 048
     Dates: end: 20070704
  4. ZOLOFT [Concomitant]
     Indication: SCHIZOPHRENIA
     Route: 048
     Dates: end: 20070704
  5. AKINETON [Concomitant]
     Indication: EXTRAPYRAMIDAL DISORDER
     Dosage: 2 MG, DAILY (1/D)
     Route: 048
     Dates: end: 20070703
  6. AKINETON [Concomitant]
     Dosage: 6 MG, UNK
     Dates: start: 20070704

REACTIONS (16)
  - BLOOD CREATINE INCREASED [None]
  - BLOOD UREA INCREASED [None]
  - BRAIN OEDEMA [None]
  - CARDIAC ARREST [None]
  - CARDIOVASCULAR DISORDER [None]
  - CONDITION AGGRAVATED [None]
  - CYANOSIS [None]
  - DRUG INEFFECTIVE [None]
  - DYSPHAGIA [None]
  - HEPATIC STEATOSIS [None]
  - HYPERVENTILATION [None]
  - INFECTION [None]
  - MYOCARDIAL FIBROSIS [None]
  - NEUROLEPTIC MALIGNANT SYNDROME [None]
  - OVERDOSE [None]
  - SCHIZOPHRENIA [None]
